FAERS Safety Report 12342146 (Version 1)
Quarter: 2016Q2

REPORT INFORMATION
  Report Type: Spontaneous
  Country: US (occurrence: US)
  Receive Date: 20160506
  Receipt Date: 20160506
  Transmission Date: 20160815
  Serious: No
  Sender: FDA-Public Use
  Company Number: US-ANACOR-2016ANA00048

PATIENT
  Sex: Male
  Weight: 68.27 kg

DRUGS (5)
  1. VITAMIN D [Concomitant]
     Active Substance: CHOLECALCIFEROL
  2. KERYDIN [Suspect]
     Active Substance: TAVABOROLE
     Indication: ONYCHOMYCOSIS
     Dosage: UNK UNK, 1X/DAY
     Route: 061
     Dates: start: 20151124
  3. CALCIUM [Concomitant]
     Active Substance: CALCIUM
  4. NYSTATIN. [Concomitant]
     Active Substance: NYSTATIN
  5. OMEPRAZOLE. [Concomitant]
     Active Substance: OMEPRAZOLE

REACTIONS (3)
  - Onychomycosis [Not Recovered/Not Resolved]
  - Drug administered at inappropriate site [Unknown]
  - Onycholysis [Unknown]
